FAERS Safety Report 6313685-X (Version None)
Quarter: 2009Q3

REPORT INFORMATION
  Report Type: 
  Country: None (occurrence: None)
  Receive Date: 20090814
  Receipt Date: 20090813
  Transmission Date: 20100115
  Serious: Yes (Life-Threatening)
  Sender: FDA-Public Use
  Company Number: 2009TJ0143FU1

PATIENT
  Age: 45 Year
  Sex: Female

DRUGS (1)
  1. TWINJECT 0.3 [Suspect]
     Indication: ANAPHYLACTIC REACTION
     Dosage: 0.3 MG, AS NEEDED
     Dates: start: 20090614, end: 20090614

REACTIONS (4)
  - DEVICE MALFUNCTION [None]
  - EXPIRED DRUG ADMINISTERED [None]
  - NEEDLE ISSUE [None]
  - PRODUCT QUALITY ISSUE [None]
